FAERS Safety Report 14776176 (Version 1)
Quarter: 2018Q2

REPORT INFORMATION
  Report Type: Spontaneous
  Country: ES (occurrence: ES)
  Receive Date: 20180418
  Receipt Date: 20180418
  Transmission Date: 20180711
  Serious: Yes (Other)
  Sender: FDA-Public Use
  Company Number: ES-DEPOMED, INC.-ES-2018DEP000810

PATIENT
  Age: 31 Year

DRUGS (3)
  1. NABIXIMOLS [Suspect]
     Active Substance: NABIXIMOLS
     Indication: MUSCLE SPASTICITY
     Dosage: 6 SPRAYS
     Route: 048
  2. GABAPENTIN. [Suspect]
     Active Substance: GABAPENTIN
     Indication: MUSCLE SPASTICITY
     Dosage: 900 MG, QD
     Route: 065
  3. BACLOFEN. [Suspect]
     Active Substance: BACLOFEN
     Indication: MUSCLE SPASTICITY
     Dosage: 50 MG, QD
     Route: 065

REACTIONS (1)
  - Hallucination [Unknown]
